FAERS Safety Report 18689339 (Version 3)
Quarter: 2021Q1

REPORT INFORMATION
  Report Type: Report from Study
  Country: NL (occurrence: NL)
  Receive Date: 20201231
  Receipt Date: 20210119
  Transmission Date: 20210419
  Serious: Yes (Hospitalization, Other)
  Sender: FDA-Public Use
  Company Number: NVSC2020NL302460

PATIENT
  Age: 4 Year
  Sex: Female

DRUGS (5)
  1. TRAMETINIB [Suspect]
     Active Substance: TRAMETINIB
     Indication: METASTATIC MALIGNANT MELANOMA
     Dosage: 0.037 MG
     Route: 048
  2. TRAMETINIB [Suspect]
     Active Substance: TRAMETINIB
     Dosage: UNK
     Route: 048
  3. GRANISETRON [Concomitant]
     Active Substance: GRANISETRON
     Indication: PRODUCT USED FOR UNKNOWN INDICATION
     Dosage: UNK
     Route: 065
  4. DABRAFENIB [Suspect]
     Active Substance: DABRAFENIB
     Indication: METASTATIC MALIGNANT MELANOMA
     Dosage: UNK
     Route: 048
  5. CETRIZINE [Concomitant]
     Active Substance: CETIRIZINE HYDROCHLORIDE
     Indication: PRODUCT USED FOR UNKNOWN INDICATION
     Dosage: UNK
     Route: 065

REACTIONS (13)
  - Staphylococcal infection [Unknown]
  - Norovirus test positive [Unknown]
  - Escherichia infection [Unknown]
  - Infection [Unknown]
  - Skin lesion [Unknown]
  - Viral infection [Unknown]
  - Skin disorder [Unknown]
  - Bacterial infection [Unknown]
  - Diarrhoea [Unknown]
  - Hair colour changes [Unknown]
  - Hair disorder [Unknown]
  - Dehydration [Unknown]
  - Dystonia [Unknown]

NARRATIVE: CASE EVENT DATE: 20201223
